FAERS Safety Report 11112447 (Version 1)
Quarter: 2015Q2

REPORT INFORMATION
  Report Type: Spontaneous
  Country: US (occurrence: None)
  Receive Date: 20150501
  Receipt Date: 20150501
  Transmission Date: 20150821
  Serious: Yes (Other)
  Sender: FDA-Public Use
  Company Number: 2014SCAL000113

PATIENT
  Age: 56 Year
  Sex: Female
  Weight: 86.2 kg

DRUGS (1)
  1. FLUOXETINE HYDROCHLORIDE (FLUOXETINE HYDROCHLORIDE) [Suspect]
     Active Substance: FLUOXETINE HYDROCHLORIDE
     Indication: DEPRESSION
     Route: 048

REACTIONS (6)
  - Serotonin syndrome [None]
  - Vomiting [None]
  - Dry mouth [None]
  - Dizziness [None]
  - Flushing [None]
  - Muscle rigidity [None]

NARRATIVE: CASE EVENT DATE: 20140912
